FAERS Safety Report 10215328 (Version 2)
Quarter: 2015Q2

REPORT INFORMATION
  Report Type: Spontaneous
  Country: PT (occurrence: PT)
  Receive Date: 20140603
  Receipt Date: 20150513
  Transmission Date: 20150821
  Serious: Yes (Hospitalization)
  Sender: FDA-Public Use
  Company Number: PHHY2014PT065225

PATIENT
  Age: 85 Year
  Sex: Male

DRUGS (2)
  1. GENTAMICINE [Concomitant]
     Active Substance: GENTAMICIN
     Indication: PRODUCT USED FOR UNKNOWN INDICATION
     Route: 065
  2. METHOTREXATE [Suspect]
     Active Substance: METHOTREXATE
     Indication: RHEUMATOID ARTHRITIS
     Dosage: 17.5 MG, QW
     Route: 048

REACTIONS (10)
  - Nasal obstruction [Unknown]
  - Body temperature increased [Unknown]
  - Epistaxis [Unknown]
  - Angiocentric lymphoma [Recovering/Resolving]
  - Nasal ulcer [Unknown]
  - Pain [Unknown]
  - Purulent discharge [Unknown]
  - Nasal inflammation [Unknown]
  - Skin lesion [Unknown]
  - Nasal septum disorder [Unknown]
